FAERS Safety Report 4679838-1 (Version None)
Quarter: 2005Q2

REPORT INFORMATION
  Report Type: 
  Country: None (occurrence: None)
  Receive Date: 20050602
  Receipt Date: 20041201
  Transmission Date: 20051028
  Serious: No
  Sender: FDA-Public Use
  Company Number: US-GLAXOSMITHKLINE-A0535732A

PATIENT
  Age: 54 Year
  Sex: Female

DRUGS (2)
  1. AUGMENTIN [Suspect]
     Indication: ILL-DEFINED DISORDER
     Dosage: 1G TWICE PER DAY
     Route: 048
     Dates: start: 20041125, end: 20041130
  2. ZOCOR [Concomitant]

REACTIONS (1)
  - DIARRHOEA [None]
